FAERS Safety Report 4747877-8 (Version None)
Quarter: 2005Q3

REPORT INFORMATION
  Report Type: 
  Country: None (occurrence: None)
  Receive Date: 20050818
  Receipt Date: 20050805
  Transmission Date: 20060218
  Serious: Yes (Hospitalization)
  Sender: FDA-Public Use
  Company Number: JP-GILEAD-2005-0008612

PATIENT
  Sex: Female

DRUGS (15)
  1. VIREAD [Suspect]
     Indication: HIV INFECTION
     Route: 048
     Dates: start: 20021001
  2. VIDEX EC [Suspect]
     Indication: HIV INFECTION
     Route: 048
     Dates: start: 20021001, end: 20030708
  3. VIRAMUNE [Suspect]
     Indication: HIV INFECTION
     Route: 048
     Dates: start: 20021001, end: 20040226
  4. VIRAMUNE [Suspect]
     Route: 048
     Dates: start: 20020917, end: 20020930
  5. NORVIR [Concomitant]
     Dates: start: 20040227
  6. REYATAZ [Concomitant]
     Dates: start: 20040227
  7. EPIVIR [Concomitant]
  8. BLOPRESS [Concomitant]
     Dates: start: 20030401
  9. ADALAT [Concomitant]
     Dates: start: 20030401
  10. CIBENOL [Concomitant]
     Dates: start: 20030401
  11. ASPIRIN [Concomitant]
     Dates: start: 20030401
  12. FRANDOL S [Concomitant]
     Dates: start: 20030401
  13. COTRIM [Concomitant]
     Dates: start: 20030513
  14. HERBESSER [Concomitant]
     Dates: start: 20041005
  15. ADALAT [Concomitant]
     Dates: start: 20040928, end: 20040929

REACTIONS (2)
  - ANAEMIA [None]
  - CHEST PAIN [None]
